FAERS Safety Report 7982932-0 (Version None)
Quarter: 2011Q4

REPORT INFORMATION
  Report Type: 
  Country: None (occurrence: None)
  Receive Date: 20111215
  Receipt Date: 20111212
  Transmission Date: 20120403
  Serious: Yes (Death)
  Sender: FDA-Public Use
  Company Number: CA-ABBOTT-11P-028-0882357-00

PATIENT
  Sex: Male
  Weight: 77.634 kg

DRUGS (1)
  1. LUPRON DEPOT [Suspect]
     Indication: PROSTATE CANCER
     Dates: start: 20071120, end: 20111104

REACTIONS (2)
  - RENAL FAILURE [None]
  - PROSTATE CANCER [None]
